FAERS Safety Report 4835355-7 (Version None)
Quarter: 2005Q4

REPORT INFORMATION
  Report Type: 
  Country: None (occurrence: None)
  Receive Date: 20051114
  Receipt Date: 20051102
  Transmission Date: 20060501
  Serious: Yes (Other)
  Sender: FDA-Public Use
  Company Number: 2005-11-0153

PATIENT
  Sex: Female

DRUGS (1)
  1. ASMANEX                  (MOMETASONE FUROATE) [Suspect]
     Indication: ASTHMA
     Dosage: INHALATION
     Route: 055

REACTIONS (4)
  - CHILLS [None]
  - DEPRESSED LEVEL OF CONSCIOUSNESS [None]
  - FEELING ABNORMAL [None]
  - HYPERHIDROSIS [None]
